FAERS Safety Report 7795052-5 (Version None)
Quarter: 2011Q4

REPORT INFORMATION
  Report Type: 
  Country: None (occurrence: None)
  Receive Date: 20111004
  Receipt Date: 20110921
  Transmission Date: 20120403
  Serious: No
  Sender: FDA-Public Use
  Company Number: US-B.I. PHARMACEUTICALS,INC./RIDGEFIELD-2011-BP-22601BP

PATIENT
  Sex: Female

DRUGS (5)
  1. LASIX [Concomitant]
     Indication: WEIGHT INCREASED
  2. AVALIDE [Concomitant]
     Indication: CARDIAC DISORDER
  3. ATENOLOL [Concomitant]
     Indication: CARDIAC DISORDER
  4. DILTIAZEM HCL [Concomitant]
     Indication: CARDIAC DISORDER
  5. PRADAXA [Suspect]
     Indication: ATRIAL FIBRILLATION
     Dosage: 300 MG
     Route: 048
     Dates: start: 20110201, end: 20110918

REACTIONS (6)
  - URINARY TRACT INFECTION [None]
  - BLOOD URINE PRESENT [None]
  - RECTAL HAEMORRHAGE [None]
  - GASTROOESOPHAGEAL REFLUX DISEASE [None]
  - DIARRHOEA [None]
  - FLATULENCE [None]
